FAERS Safety Report 20381033 (Version 2)
Quarter: 2022Q1

REPORT INFORMATION
  Report Type: Spontaneous
  Country: TR (occurrence: TR)
  Receive Date: 20220127
  Receipt Date: 20220216
  Transmission Date: 20220423
  Serious: Yes (Other)
  Sender: FDA-Public Use
  Company Number: TR-CHIESI-2022CHF00209

PATIENT
  Age: 1 Month
  Sex: Male
  Weight: 2.64 kg

DRUGS (1)
  1. CUROSURF [Suspect]
     Active Substance: PORACTANT ALFA
     Indication: Neonatal respiratory distress syndrome
     Dosage: 1 DOSAGE FORM, QD
     Route: 007
     Dates: start: 20211219

REACTIONS (2)
  - Cyanosis neonatal [Recovered/Resolved]
  - Erythema [Recovered/Resolved]

NARRATIVE: CASE EVENT DATE: 20211219
